FAERS Safety Report 8812180 (Version 4)
Quarter: 2013Q1

REPORT INFORMATION
  Report Type: Spontaneous
  Country: CA (occurrence: CA)
  Receive Date: 20120927
  Receipt Date: 20130208
  Transmission Date: 20140127
  Serious: Yes (Hospitalization, Other)
  Sender: FDA-Public Use
  Company Number: CA-ELI_LILLY_AND_COMPANY-CA201209005907

PATIENT
  Age: 69 Year
  Sex: Female
  Weight: 47 kg

DRUGS (10)
  1. FORTEO [Suspect]
     Indication: OSTEOPOROSIS
     Dosage: 20 UG, QD
     Route: 058
     Dates: start: 20101210, end: 20121202
  2. FORTEO [Suspect]
     Dosage: 20 UG, QD
     Route: 058
     Dates: end: 20121202
  3. NEXIUM [Concomitant]
     Dosage: 40 MG, QD
     Route: 065
  4. VITAMIN D NOS [Concomitant]
     Indication: OSTEOPOROSIS
     Dosage: 10000 DF, 4/W
     Route: 065
  5. CALCIUM [Concomitant]
     Indication: OSTEOPOROSIS
     Dosage: 500 MG, UNK
  6. FLAGYL [Concomitant]
     Indication: CLOSTRIDIAL INFECTION
     Dosage: 200 MG, BID
     Route: 065
  7. VANCOMYCIN [Concomitant]
     Dosage: UNK UNK, 3/W
     Route: 042
  8. COUMADIN [Concomitant]
     Dosage: UNK, UNKNOWN
     Route: 065
  9. DILAUDID [Concomitant]
     Dosage: UNK, UNKNOWN
     Route: 065
  10. PRUCALOPRIDE [Concomitant]
     Dosage: 4 MG, QD
     Route: 065

REACTIONS (4)
  - Scleroderma [Recovered/Resolved]
  - Clostridium difficile infection [Recovered/Resolved]
  - Scleroderma [Recovered/Resolved]
  - Sepsis [Recovered/Resolved]
